FAERS Safety Report 5571255-5 (Version None)
Quarter: 2007Q4

REPORT INFORMATION
  Report Type: 
  Country: None (occurrence: None)
  Receive Date: 20071221
  Receipt Date: 20070327
  Transmission Date: 20080405
  Serious: No
  Sender: FDA-Public Use
  Company Number: A0644880A

PATIENT
  Age: 44 Year
  Sex: Female
  Weight: 65.9 kg

DRUGS (3)
  1. FLUTICASONE PROPIONATE [Suspect]
     Indication: SINUSITIS
     Dosage: 4SPR PER DAY
     Route: 045
     Dates: start: 20070315, end: 20070316
  2. ZITHROMAX [Concomitant]
     Indication: SINUSITIS
  3. CLARITIN [Concomitant]
     Indication: SINUSITIS

REACTIONS (2)
  - AGEUSIA [None]
  - ANOSMIA [None]
